FAERS Safety Report 13609432 (Version 2)
Quarter: 2017Q2

REPORT INFORMATION
  Report Type: Spontaneous
  Country: US (occurrence: US)
  Receive Date: 20170602
  Receipt Date: 20170605
  Transmission Date: 20170830
  Serious: No
  Sender: FDA-Public Use
  Company Number: US-PFIZER INC-2878135

PATIENT
  Sex: Female

DRUGS (2)
  1. KETOROLAC TROMETHAMINE. [Suspect]
     Active Substance: KETOROLAC TROMETHAMINE
     Indication: HEADACHE
     Dosage: ONCE
     Route: 042
     Dates: start: 20150401
  2. KETOROLAC TROMETHAMINE. [Suspect]
     Active Substance: KETOROLAC TROMETHAMINE
     Dosage: ONCE
     Route: 042
     Dates: start: 20150406

REACTIONS (6)
  - Poor quality drug administered [Unknown]
  - Product quality issue [Unknown]
  - Feeling abnormal [Unknown]
  - Headache [Unknown]
  - Back pain [Unknown]
  - Gastric disorder [Unknown]

NARRATIVE: CASE EVENT DATE: 20150401
